FAERS Safety Report 9826309 (Version 1)
Quarter: 2014Q1

REPORT INFORMATION
  Report Type: Spontaneous
  Country: US (occurrence: US)
  Receive Date: 20140117
  Receipt Date: 20140117
  Transmission Date: 20141002
  Serious: No
  Sender: FDA-Public Use
  Company Number: US-BIOGENIDEC-2014BI001309

PATIENT
  Sex: Female
  Weight: 73 kg

DRUGS (11)
  1. TECFIDERA [Suspect]
     Indication: PRODUCT USED FOR UNKNOWN INDICATION
     Route: 048
  2. TECFIDERA [Suspect]
     Indication: PRODUCT USED FOR UNKNOWN INDICATION
     Route: 048
  3. ZOLOFT [Concomitant]
  4. OMEPRAZOLE [Concomitant]
  5. RANITIDINE [Concomitant]
  6. BACLOFEN [Concomitant]
  7. VITAMIN E [Concomitant]
  8. VITAMIN D [Concomitant]
  9. PROVIGIL [Concomitant]
  10. VITAMIN B COMPLEX [Concomitant]
  11. CALCIUM 500 [Concomitant]

REACTIONS (3)
  - Urticaria [Not Recovered/Not Resolved]
  - Nausea [Not Recovered/Not Resolved]
  - Vomiting [Not Recovered/Not Resolved]
